FAERS Safety Report 7110817-0 (Version None)
Quarter: 2010Q4

REPORT INFORMATION
  Report Type: 
  Country: None (occurrence: None)
  Receive Date: 20101116
  Receipt Date: 20101116
  Transmission Date: 20110411
  Serious: Yes (Other)
  Sender: FDA-Public Use
  Company Number: None

PATIENT
  Sex: Male
  Weight: 99.5 kg

DRUGS (1)
  1. OXYCONTIN [Suspect]
     Dosage: 80 MG 2 A DAY ORAL EVERY DAY
     Route: 048

REACTIONS (6)
  - CONSTIPATION [None]
  - DECREASED APPETITE [None]
  - DRUG INEFFECTIVE [None]
  - FEELING ABNORMAL [None]
  - GASTRIC DISORDER [None]
  - PRODUCT SUBSTITUTION ISSUE [None]
